FAERS Safety Report 8499196-4 (Version None)
Quarter: 2012Q2

REPORT INFORMATION
  Report Type: 
  Country: None (occurrence: None)
  Receive Date: 20120405
  Receipt Date: 20100623
  Transmission Date: 20120825
  Serious: Yes (Other)
  Sender: FDA-Public Use
  Company Number: PHHY2010US41870

PATIENT
  Sex: Female

DRUGS (2)
  1. RECLAST [Suspect]
     Dosage: 5 MG PER YEAR, INTRAVENOUS
     Route: 042
  2. DIOVAN [Suspect]
     Indication: HYPERTENSION
     Dosage: 320 MG

REACTIONS (1)
  - HYPERTENSION [None]
